FAERS Safety Report 13590586 (Version 1)
Quarter: 2017Q2

REPORT INFORMATION
  Report Type: Spontaneous
  Country: US (occurrence: US)
  Receive Date: 20170530
  Receipt Date: 20170530
  Transmission Date: 20170830
  Serious: Yes (Death, Other)
  Sender: FDA-Public Use
  Company Number: US-009507513-1705USA013322

PATIENT
  Age: 69 Year
  Sex: Male
  Weight: 65.4 kg

DRUGS (3)
  1. BORTEZOMIB [Suspect]
     Active Substance: BORTEZOMIB
     Indication: PLASMA CELL MYELOMA
     Dosage: 2.1(UNIT NOT PROVIDED), SUBCUTANEOUS (SQ) ON D1, D8, D15, D22
     Route: 058
     Dates: start: 20170428, end: 20170506
  2. DECADRON [Suspect]
     Active Substance: DEXAMETHASONE
     Indication: PLASMA CELL MYELOMA
     Dosage: 20 MG, INTRAVENOUS (IV) ON D1, D8, D15, D22
     Route: 042
     Dates: start: 20170428, end: 20170506
  3. CYTOXAN [Suspect]
     Active Substance: CYCLOPHOSPHAMIDE
     Indication: PLASMA CELL MYELOMA
     Dosage: 489 MG, INTRAVENOUS (IV) ON D1, D8, D15, D22
     Route: 042
     Dates: start: 20170428, end: 20170506

REACTIONS (4)
  - Cardiac failure chronic [Unknown]
  - Respiratory failure [Fatal]
  - Oedema peripheral [Unknown]
  - Dyspnoea [Unknown]

NARRATIVE: CASE EVENT DATE: 20170511
